FAERS Safety Report 24408110 (Version 4)
Quarter: 2024Q4

REPORT INFORMATION
  Report Type: Spontaneous
  Country: US (occurrence: US)
  Receive Date: 20241007
  Receipt Date: 20241212
  Transmission Date: 20250115
  Serious: No
  Sender: PFIZER
  Company Number: US-PFIZER INC-202400270111

PATIENT
  Age: 77 Year
  Sex: Female

DRUGS (4)
  1. IBRANCE [Suspect]
     Active Substance: PALBOCICLIB
     Indication: Breast cancer metastatic
     Dosage: 100 MG, CYCLIC, (DAILY FOR 21 DAYS THEN REST FOR 7 DAYS)
     Route: 048
  2. IBRANCE [Suspect]
     Active Substance: PALBOCICLIB
     Dosage: 100 MG, CYCLIC, TAKE 1 TABLET DAILY FOR 21 DAYS, THEN REST FOR 7 DAYS. REPEAT EVERY 28 DAYS
     Route: 048
  3. IBRANCE [Suspect]
     Active Substance: PALBOCICLIB
     Dosage: 100 MG, CYCLIC, (DAY 1-20 EVERY 28 DAYS)
     Route: 048
  4. XANAX [Concomitant]
     Active Substance: ALPRAZOLAM
     Indication: Anxiety
     Dosage: 1 DF, AS NEEDED (3 (THREE))
     Route: 048

REACTIONS (4)
  - Oropharyngeal discomfort [Unknown]
  - Dysphonia [Unknown]
  - Off label use [Unknown]
  - Product prescribing error [Unknown]
